FAERS Safety Report 11998265 (Version 1)
Quarter: 2016Q1

REPORT INFORMATION
  Report Type: Other
  Country: US (occurrence: US)
  Receive Date: 20160203
  Receipt Date: 20160203
  Transmission Date: 20160526
  Serious: Yes (Other)
  Sender: FDA-Public Use
  Company Number: US-GUTHY-RENKER LLC-1047290

PATIENT
  Age: 48 Year
  Sex: Female

DRUGS (2)
  1. IT COSMETIC BYE BYE FOUNDATION SPF 50+ [Suspect]
     Active Substance: TITANIUM DIOXIDE\ZINC OXIDE
     Indication: PHOTOSENSITIVITY REACTION
     Route: 061
  2. IT COSMETIC BYE BYE FOUNDATION SPF 50+ [Suspect]
     Active Substance: TITANIUM DIOXIDE\ZINC OXIDE
     Indication: PROPHYLAXIS
     Route: 061

REACTIONS (7)
  - Hypersensitivity [None]
  - Application site pruritus [None]
  - Swelling face [None]
  - Pain [None]
  - Inflammation [None]
  - Application site swelling [None]
  - Application site rash [None]
